FAERS Safety Report 9911595 (Version 2)
Quarter: 2014Q2

REPORT INFORMATION
  Report Type: Report from Study
  Country: BR (occurrence: BR)
  Receive Date: 20140219
  Receipt Date: 20140423
  Transmission Date: 20141212
  Serious: Yes (Other)
  Sender: FDA-Public Use
  Company Number: PHHY2014BR018758

PATIENT
  Age: 65 Year
  Sex: Female
  Weight: 75 kg

DRUGS (5)
  1. TRILEPTAL [Suspect]
     Indication: SYNCOPE
     Dosage: 03 DF, DAILY (01 DF IN THE MORNING AND 02 DF AT NIGHT)
     Route: 048
     Dates: start: 1990
  2. TRILEPTAL [Suspect]
     Indication: OFF LABEL USE
  3. BENICAR HCT [Concomitant]
     Indication: HYPERTENSION
     Dosage: UNK UKN, UNK
     Dates: start: 2010
  4. BROMAZEPAM [Concomitant]
     Indication: NERVOUSNESS
     Dosage: UNK UKN, PRN
     Dates: start: 1990
  5. PREDNISONE [Concomitant]
     Dosage: UNK UKN, UNK
     Dates: start: 1998

REACTIONS (12)
  - Cold sweat [Recovering/Resolving]
  - Osteoarthritis [Unknown]
  - Haemorrhage [Recovering/Resolving]
  - Convulsion [Recovering/Resolving]
  - Hypotension [Recovering/Resolving]
  - Malaise [Recovering/Resolving]
  - Anaemia [Recovering/Resolving]
  - Blood pressure increased [Recovering/Resolving]
  - Syncope [Recovering/Resolving]
  - Pain [Recovering/Resolving]
  - Abasia [Unknown]
  - Pain in extremity [Unknown]
